FAERS Safety Report 4739146-7 (Version None)
Quarter: 2005Q3

REPORT INFORMATION
  Report Type: 
  Country: None (occurrence: None)
  Receive Date: 20050810
  Receipt Date: 20050425
  Transmission Date: 20060218
  Serious: No
  Sender: FDA-Public Use
  Company Number: US-GLAXOSMITHKLINE-A0555675A

PATIENT
  Sex: Female

DRUGS (2)
  1. PAXIL CR [Suspect]
     Indication: ANXIETY
     Route: 048
  2. STRATTERA [Concomitant]

REACTIONS (4)
  - DIZZINESS [None]
  - ELECTRIC SHOCK [None]
  - HYPOAESTHESIA [None]
  - VERTIGO [None]
